FAERS Safety Report 13721001 (Version 1)
Quarter: 2017Q3

REPORT INFORMATION
  Report Type: Spontaneous
  Country: US (occurrence: US)
  Receive Date: 20170705
  Receipt Date: 20170705
  Transmission Date: 20171127
  Serious: Yes (Hospitalization, Disabling)
  Sender: FDA-Public Use
  Company Number: None

PATIENT
  Sex: Female

DRUGS (2)
  1. LANTUS [Suspect]
     Active Substance: INSULIN GLARGINE
     Dosage: QUANTITY:1 INJECTION(S);OTHER ROUTE:INJECTION INTO STOMACH?
  2. GI COCKTAIL [Concomitant]

REACTIONS (3)
  - Back pain [None]
  - Pain in extremity [None]
  - Groin pain [None]

NARRATIVE: CASE EVENT DATE: 20170628
